FAERS Safety Report 19835467 (Version 1)
Quarter: 2021Q3

REPORT INFORMATION
  Report Type: Spontaneous
  Country: US (occurrence: US)
  Receive Date: 20210914
  Receipt Date: 20210914
  Transmission Date: 20211014
  Serious: No
  Sender: FDA-Public Use
  Company Number: US-GE HEALTHCARE LIFE SCIENCES-2021CSU003161

PATIENT
  Age: 65 Year
  Sex: Male
  Weight: 109.3 kg

DRUGS (2)
  1. OMNIPAQUE [Suspect]
     Active Substance: IOHEXOL
     Indication: COMPUTERISED TOMOGRAM THORAX
     Dosage: 100 ML, SINGLE
     Route: 042
     Dates: start: 20210624, end: 20210624
  2. OMNIPAQUE [Suspect]
     Active Substance: IOHEXOL
     Indication: DYSPNOEA

REACTIONS (1)
  - Sneezing [Recovered/Resolved]

NARRATIVE: CASE EVENT DATE: 20210624
